FAERS Safety Report 7304382-2 (Version None)
Quarter: 2011Q1

REPORT INFORMATION
  Report Type: 
  Country: None (occurrence: None)
  Receive Date: 20110221
  Receipt Date: 20110111
  Transmission Date: 20110831
  Serious: Yes (Death, Hospitalization, Other)
  Sender: FDA-Public Use
  Company Number: US-AMGEN-QUU396201

PATIENT
  Age: 44 Year
  Sex: Female
  Weight: 85.714 kg

DRUGS (69)
  1. HUMALOG [Concomitant]
  2. NEXIUM [Concomitant]
     Dosage: 40 MG, UNK
     Route: 048
  3. ULTRAM [Concomitant]
  4. PROCHLORPERAZINE [Concomitant]
     Dosage: 10 MG, UNK
     Route: 048
  5. ALBUTEROL [Concomitant]
     Dosage: UNK UNK, PRN
  6. PSEUDOVENT [Concomitant]
     Dosage: 400 UNK, BID
     Route: 048
  7. VYTORIN [Concomitant]
     Dosage: 80 MG, UNK
     Route: 048
  8. PRILOSEC [Concomitant]
  9. ONDANSERTRON HCL [Concomitant]
     Dosage: 4 MG, Q8H
  10. NASACORT AQ [Concomitant]
     Route: 045
  11. NAPROXEN [Concomitant]
     Dosage: 500 MG, BID
     Route: 048
  12. ESTRADIOL [Concomitant]
     Dosage: 0.1 MG, UNK
     Route: 062
  13. MOBIC [Concomitant]
     Dosage: 15 MG, UNK
  14. ACCUPRIL [Concomitant]
     Dosage: 40 MG, UNK
     Route: 048
  15. LEXAPRO [Concomitant]
     Dosage: 20 MG, UNK
     Route: 048
  16. ADVIL LIQUI-GELS [Concomitant]
  17. RISPERDAL [Concomitant]
     Dosage: 0.5 MG, UNK
  18. METHYLNALTREXONE BROMIDE [Concomitant]
     Dosage: 12 MG, UNK
  19. CIPRO [Concomitant]
     Dosage: 500 MG, UNK
     Route: 048
  20. FLUDROCORTISONE [Concomitant]
     Dosage: 0.1 MG, UNK
  21. KIONEX [Concomitant]
     Dosage: 15 G, UNK
  22. IPRATROPIUM BROMIDE/ALBUTEROL SULFATE [Concomitant]
  23. CLINDAMYCIN HCL [Concomitant]
     Dosage: 150 UNK, UNK
  24. LANTUS [Concomitant]
  25. PREMARIN [Concomitant]
     Dosage: 0.625 UNK, UNK
     Route: 048
  26. MAGNESIUM OXIDE [Concomitant]
     Dosage: 400 MG, QD
     Route: 048
  27. MEGACE [Concomitant]
  28. TEMAZEPAM [Concomitant]
     Dosage: 30 MG, QHS
  29. NABUMETONE [Concomitant]
  30. NORTRIPTYLINE HCL [Concomitant]
     Dosage: 25 MG, UNK
     Route: 048
  31. ENBREL [Suspect]
     Dosage: 25 UNK, 2 TIMES/WK
     Dates: start: 20060401
  32. VICODIN [Concomitant]
     Dosage: 500 UNK, UNK
  33. METHOTREXATE [Concomitant]
     Dosage: UNK UNK, QWK
     Route: 048
     Dates: start: 20050501, end: 20050601
  34. FOLIC ACID [Concomitant]
     Dosage: 2 MG, UNK
  35. NIRAVAM [Concomitant]
     Dosage: 0.5 MG, UNK
  36. ABILIFY [Concomitant]
     Dosage: 5 MG, UNK
     Route: 048
  37. OXYCODONE [Concomitant]
     Dosage: 15 MG, UNK
     Route: 048
  38. METOPROLOL TARTRATE [Concomitant]
     Dosage: 12.5 MG, UNK
     Route: 048
  39. ALPRAZOLAM [Concomitant]
     Dosage: 0.5 MG, UNK
     Route: 048
  40. UNSPECIFIED STEROIDS [Concomitant]
  41. SOMA [Concomitant]
     Dosage: 250 UNK, UNK
  42. PAXIL [Concomitant]
  43. FOLIC ACID [Concomitant]
     Dosage: 1 MG, QD
  44. PROPOXYPHENE HCL AND ACETAMINOPHEN [Concomitant]
     Dosage: UNK UNK, Q4H
  45. HYDROCODONE BITARTAT.+ HOMATOPRINE METHYLBR. [Concomitant]
     Route: 048
  46. TIZANIDINE HYDROCHLORIDE [Concomitant]
     Dosage: 2 MG, UNK
     Route: 048
  47. HYDROXYZINE HCL [Concomitant]
     Dosage: 10 MG, UNK
  48. ENBREL [Suspect]
     Dosage: 50 MG, QWK
     Route: 058
     Dates: start: 20010801
  49. PREMARIN [Concomitant]
     Dosage: 1.25 MG, UNK
     Route: 048
  50. ACCUPRIL [Concomitant]
     Dosage: 20 MG, BID
     Route: 048
  51. RELAFIN [Concomitant]
     Dosage: 500 UNK, UNK
     Dates: end: 20050505
  52. METHOTREXATE [Concomitant]
     Dosage: 15 MG, QWK
     Route: 058
     Dates: start: 20050601, end: 20080301
  53. METICORTEN [Concomitant]
     Dosage: 15 MG, UNK
  54. SCOPOLAMINE [Concomitant]
     Dosage: 1.5 MG, UNK
     Route: 062
  55. KLOR-CON [Concomitant]
     Dosage: 20 MEQ, UNK
  56. SULFAMETHOXAZOLE AND TRIMETHOPRIM [Concomitant]
     Route: 048
  57. DESOXIMETASONE [Concomitant]
     Dosage: 0.25 %, BID
  58. XANAX [Concomitant]
     Dosage: .025 UNK, UNK
  59. DICLOFENAC [Concomitant]
     Dosage: 75 MG, UNK
  60. LIPITOR [Concomitant]
  61. ULTRACET [Concomitant]
     Dosage: 650 UNK, UNK
  62. REGLAN [Concomitant]
     Dosage: 10 MG, UNK
     Dates: end: 20100125
  63. REGLAN [Concomitant]
     Dosage: 5 MG, QID
  64. VIRAVAN [Concomitant]
  65. TYLENOL (CAPLET) [Concomitant]
  66. DURAGESIC-100 [Concomitant]
  67. METACLOPRAMIDE [Concomitant]
     Dosage: 10 MG, UNK
     Route: 048
  68. LORAZEPAM [Concomitant]
     Dosage: 0.5 MG, BID
     Route: 048
  69. LEVAQUIN [Concomitant]
     Dosage: 500 MG, UNK
     Route: 048

REACTIONS (44)
  - IMMUNOSUPPRESSION [None]
  - DYSPHONIA [None]
  - ATELECTASIS [None]
  - DYSPNOEA [None]
  - CHILLS [None]
  - BRONCHITIS [None]
  - NASAL SEPTUM DEVIATION [None]
  - DEATH [None]
  - LUNG NEOPLASM [None]
  - ASTHENIA [None]
  - VOMITING [None]
  - MYOSITIS [None]
  - PLEURITIC PAIN [None]
  - VENTILATION/PERFUSION SCAN ABNORMAL [None]
  - IMPAIRED GASTRIC EMPTYING [None]
  - LEUKOCYTOSIS [None]
  - DYSURIA [None]
  - CHOLELITHIASIS [None]
  - JOINT EFFUSION [None]
  - UTERINE CANCER [None]
  - ZYGOMYCOSIS [None]
  - BLOOD CULTURE POSITIVE [None]
  - PAIN [None]
  - VOCAL CORD PARALYSIS [None]
  - PERICARDIAL EFFUSION [None]
  - HAEMATOMA [None]
  - PNEUMONIA [None]
  - LYMPHADENOPATHY [None]
  - CERVIX CARCINOMA [None]
  - HEART RATE INCREASED [None]
  - ENDOCARDITIS [None]
  - TEMPOROMANDIBULAR JOINT SYNDROME [None]
  - PARANASAL CYST [None]
  - PULMONARY CONGESTION [None]
  - GASTROINTESTINAL TUBE INSERTION [None]
  - NAUSEA [None]
  - OSTEOARTHRITIS [None]
  - BONE CYST [None]
  - NASAL POLYPS [None]
  - RESPIRATORY FAILURE [None]
  - VOCAL CORD ATROPHY [None]
  - DECUBITUS ULCER [None]
  - CATHETER SITE INFECTION [None]
  - RESPIRATORY TRACT INFECTION FUNGAL [None]
